FAERS Safety Report 5087899-3 (Version None)
Quarter: 2006Q3

REPORT INFORMATION
  Report Type: 
  Country: None (occurrence: None)
  Receive Date: 20060821
  Receipt Date: 20060821
  Transmission Date: 20061208
  Serious: No
  Sender: FDA-Public Use
  Company Number: None

PATIENT
  Age: 83 Year
  Sex: Female

DRUGS (1)
  1. TARCEVA [Suspect]
     Indication: LUNG NEOPLASM MALIGNANT
     Dosage: 150MG  QD  PO
     Route: 048

REACTIONS (5)
  - ANOREXIA [None]
  - NAUSEA [None]
  - RASH [None]
  - SUNBURN [None]
  - VOMITING [None]
